FAERS Safety Report 12700369 (Version 1)
Quarter: 2016Q3

REPORT INFORMATION
  Report Type: Spontaneous
  Country: US (occurrence: US)
  Receive Date: 20160830
  Receipt Date: 20160830
  Transmission Date: 20161109
  Serious: No
  Sender: FDA-Public Use
  Company Number: US-SA-2016SA099255

PATIENT
  Age: 38 Year
  Sex: Male
  Weight: 78.01 kg

DRUGS (13)
  1. LISINOPRIL. [Concomitant]
     Active Substance: LISINOPRIL
     Route: 048
     Dates: start: 20140508
  2. FABRAZYME [Suspect]
     Active Substance: AGALSIDASE BETA
     Indication: GAUCHER^S DISEASE
     Route: 042
  3. EPIPEN [Concomitant]
     Active Substance: EPINEPHRINE
     Indication: ANAPHYLACTIC REACTION
     Route: 030
     Dates: start: 20160118
  4. FABRAZYME [Suspect]
     Active Substance: AGALSIDASE BETA
     Indication: GAUCHER^S DISEASE
     Route: 042
  5. NORMAL SALINE [Concomitant]
     Active Substance: SODIUM CHLORIDE
     Indication: FLUSHING
     Dosage: AS DIRECTED
     Route: 042
     Dates: start: 20160118
  6. ACETAMINOPHEN. [Concomitant]
     Active Substance: ACETAMINOPHEN
     Route: 048
     Dates: start: 20140703
  7. KEFLEX [Concomitant]
     Active Substance: CEPHALEXIN
     Route: 048
     Dates: start: 20160202
  8. LOSARTAN. [Concomitant]
     Active Substance: LOSARTAN
     Route: 048
     Dates: start: 20160106
  9. TEGRETOL [Concomitant]
     Active Substance: CARBAMAZEPINE
     Route: 048
     Dates: start: 20160106
  10. MAGNESIUM [Concomitant]
     Active Substance: MAGNESIUM
     Route: 048
     Dates: start: 20150112
  11. VITAMIN C [Concomitant]
     Active Substance: ASCORBIC ACID
     Route: 048
     Dates: start: 20150112
  12. VITAMIN D [Concomitant]
     Active Substance: CHOLECALCIFEROL
     Route: 048
     Dates: start: 20150112
  13. ASPIRIN. [Concomitant]
     Active Substance: ASPIRIN
     Route: 048
     Dates: start: 20130222

REACTIONS (1)
  - Pityriasis rosea [Unknown]
